FAERS Safety Report 9023579 (Version 2)
Quarter: 2013Q2

REPORT INFORMATION
  Report Type: Spontaneous
  Country: JP (occurrence: JP)
  Receive Date: 20130121
  Receipt Date: 20130426
  Transmission Date: 20140414
  Serious: Yes (Death, Hospitalization, Other)
  Sender: FDA-Public Use
  Company Number: PHHY2013JP004642

PATIENT
  Age: 71 Year
  Sex: Female

DRUGS (1)
  1. HEPARIN [Suspect]
     Indication: THROMBOSIS PROPHYLAXIS
     Dosage: 9000 U, DAILY
     Route: 042

REACTIONS (13)
  - Septic shock [Fatal]
  - Cardiogenic shock [Fatal]
  - Ejection fraction decreased [Fatal]
  - Hypotension [Unknown]
  - Agranulocytosis [Unknown]
  - Cardiac arrest [Unknown]
  - Pyrexia [Unknown]
  - Myocarditis [Unknown]
  - Pneumonia [Unknown]
  - Stupor [Unknown]
  - Heparin-induced thrombocytopenia [Recovering/Resolving]
  - Intracardiac thrombus [Unknown]
  - Urine output decreased [Unknown]
